FAERS Safety Report 8829410 (Version 1)
Quarter: 2012Q4

REPORT INFORMATION
  Report Type: 
  Country: FR (occurrence: FR)
  Receive Date: 20121008
  Receipt Date: 20121008
  Transmission Date: 20130627
  Serious: Yes (Hospitalization, Other)
  Sender: FDA-Public Use
  Company Number: FR-BRISTOL-MYERS SQUIBB COMPANY-17008970

PATIENT
  Age: 81 Year
  Sex: Male

DRUGS (9)
  1. COUMADIN [Suspect]
     Route: 048
  2. ACETYLSALICYLIC ACID [Interacting]
     Dosage: Aspirin
  3. CORTANCYL [Interacting]
     Route: 048
  4. BACTRIM [Interacting]
     Route: 048
  5. CRESTOR [Interacting]
     Route: 048
  6. INEXIUM [Interacting]
     Dosage: Gastro-resistant tablet
     Route: 048
  7. SPECIAFOLDINE [Concomitant]
  8. BISOPROLOL [Concomitant]
  9. RAMIPRIL [Concomitant]

REACTIONS (6)
  - Haematoma [Recovered/Resolved]
  - International normalised ratio increased [Recovered/Resolved]
  - Accidental overdose [Recovered/Resolved]
  - Renal failure acute [Unknown]
  - Fall [Unknown]
  - Drug interaction [Unknown]
